FAERS Safety Report 6480780-4 (Version None)
Quarter: 2009Q4

REPORT INFORMATION
  Report Type: 
  Country: None (occurrence: None)
  Receive Date: 20091203
  Receipt Date: 20091125
  Transmission Date: 20100525
  Serious: Yes (Other)
  Sender: FDA-Public Use
  Company Number: 2009SP035610

PATIENT
  Sex: Female

DRUGS (2)
  1. SAPHRIS [Suspect]
     Indication: DRUG USE FOR UNKNOWN INDICATION
     Dosage: 5 MG; BID; SL, 10 MG; BID; SL
     Route: 060
  2. SAPHRIS [Suspect]
     Indication: DRUG USE FOR UNKNOWN INDICATION
     Dosage: 5 MG; BID; SL, 10 MG; BID; SL
     Route: 060

REACTIONS (5)
  - DIZZINESS [None]
  - DYSGEUSIA [None]
  - HALLUCINATION, AUDITORY [None]
  - HEADACHE [None]
  - NAUSEA [None]
